FAERS Safety Report 5959249-9 (Version None)
Quarter: 2008Q4

REPORT INFORMATION
  Report Type: 
  Country: None (occurrence: None)
  Receive Date: 20081120
  Receipt Date: 20081001
  Transmission Date: 20090506
  Serious: No
  Sender: FDA-Public Use
  Company Number: A0750859A

PATIENT
  Age: 45 Year
  Sex: Female

DRUGS (1)
  1. BUPROPION HYDROCHLORIDE [Suspect]
     Indication: ANXIETY
     Dosage: 150MG PER DAY
     Route: 048
     Dates: start: 20080701

REACTIONS (4)
  - BLOOD PRESSURE INCREASED [None]
  - INSOMNIA [None]
  - NERVOUSNESS [None]
  - PAIN IN EXTREMITY [None]
